FAERS Safety Report 5781237-6 (Version None)
Quarter: 2008Q2

REPORT INFORMATION
  Report Type: 
  Country: None (occurrence: None)
  Receive Date: 20080618
  Receipt Date: 20080605
  Transmission Date: 20081010
  Serious: Yes (Hospitalization)
  Sender: FDA-Public Use
  Company Number: 2008AL004727

PATIENT
  Age: 75 Year
  Sex: Female
  Weight: 113.3993 kg

DRUGS (1)
  1. DIGOXIN [Suspect]
     Indication: CORONARY ARTERY BYPASS
     Dosage: 0.25MG DAILY PO
     Route: 048
     Dates: start: 20080411

REACTIONS (5)
  - ATRIAL FIBRILLATION [None]
  - ATRIAL FLUTTER [None]
  - DIZZINESS [None]
  - DYSPNOEA [None]
  - FATIGUE [None]
